FAERS Safety Report 9017033 (Version 2)
Quarter: 2013Q1

REPORT INFORMATION
  Report Type: Spontaneous
  Country: US (occurrence: US)
  Receive Date: 20130117
  Receipt Date: 20130124
  Transmission Date: 20140127
  Serious: Yes (Other)
  Sender: FDA-Public Use
  Company Number: PHEH2013US001432

PATIENT
  Sex: Female

DRUGS (8)
  1. DIOVAN [Suspect]
  2. LEVOXYL [Concomitant]
  3. HUMULIN [Concomitant]
  4. SYMLIN [Concomitant]
  5. CRESTOR [Concomitant]
  6. ALPRAZOLAM [Concomitant]
  7. ALBUTEROL [Concomitant]
  8. PRO-AIR [Concomitant]

REACTIONS (3)
  - Diabetes mellitus [Unknown]
  - Discomfort [Unknown]
  - Anxiety [Unknown]
